FAERS Safety Report 11598551 (Version 1)
Quarter: 2015Q4

REPORT INFORMATION
  Report Type: Spontaneous
  Country: CO (occurrence: CO)
  Receive Date: 20151006
  Receipt Date: 20151006
  Transmission Date: 20160304
  Serious: Yes (Death, Other)
  Sender: FDA-Public Use
  Company Number: CO-VIIV HEALTHCARE LIMITED-CO2015GSK076341

PATIENT
  Age: 47 Year
  Sex: Male

DRUGS (3)
  1. CELSENTRI [Suspect]
     Active Substance: MARAVIROC
     Indication: SALVAGE THERAPY
     Dosage: 300 MG, QD
     Route: 048
  2. ETRAVIRINE [Suspect]
     Active Substance: ETRAVIRINE
     Indication: SALVAGE THERAPY
     Dosage: 300 MG, QD
  3. KALETRA [Concomitant]
     Active Substance: LOPINAVIR\RITONAVIR
     Indication: SALVAGE THERAPY
     Dosage: 500 MG, QD

REACTIONS (1)
  - Bacteraemia [Fatal]
